FAERS Safety Report 8866670 (Version 1)
Quarter: 2012Q4

REPORT INFORMATION
  Report Type: 
  Country: US (occurrence: US)
  Receive Date: 20121025
  Receipt Date: 20121025
  Transmission Date: 20130627
  Serious: No
  Sender: FDA-Public Use
  Company Number: US-AMGEN-USASP2012013136

PATIENT
  Age: 35 Year
  Sex: Female
  Weight: 56.69 kg

DRUGS (2)
  1. ENBREL [Suspect]
     Indication: RHEUMATOID ARTHRITIS
     Dosage: 50 mg, qwk
     Route: 058
  2. ALEVE [Concomitant]
     Dosage: 220 mg, UNK
     Route: 048

REACTIONS (3)
  - Influenza like illness [Unknown]
  - Asthenia [Unknown]
  - Feeling hot [Unknown]
